FAERS Safety Report 22316967 (Version 1)
Quarter: 2023Q2

REPORT INFORMATION
  Report Type: Spontaneous
  Country: JP (occurrence: JP)
  Receive Date: 20230514
  Receipt Date: 20230514
  Transmission Date: 20230721
  Serious: Yes (Other)
  Sender: FDA-Public Use
  Company Number: JP-GILEAD-2023-0627802

PATIENT
  Age: 9 Decade
  Sex: Male

DRUGS (10)
  1. VEKLURY [Suspect]
     Active Substance: REMDESIVIR
     Indication: COVID-19
     Dosage: 200 MG, QD
     Route: 042
     Dates: start: 20230430, end: 20230430
  2. VEKLURY [Suspect]
     Active Substance: REMDESIVIR
     Dosage: 100 MG, QD
     Route: 042
     Dates: start: 20230501, end: 20230504
  3. LOXOPROFEN [Concomitant]
     Active Substance: LOXOPROFEN
     Indication: Pain
  4. LOXOPROFEN [Concomitant]
     Active Substance: LOXOPROFEN
     Indication: Pyrexia
  5. SENNOSIDES A AND B [Concomitant]
     Active Substance: SENNOSIDES A AND B
     Indication: Constipation
  6. EDOXABAN TOSYLATE [Concomitant]
     Active Substance: EDOXABAN TOSYLATE
     Indication: Cerebral infarction
  7. BISOPROLOL [Concomitant]
     Active Substance: BISOPROLOL
     Indication: Hypertension
  8. CABPIRIN [Concomitant]
     Indication: Hypertension
  9. AMLODIPINE [Concomitant]
     Active Substance: AMLODIPINE BESYLATE
     Indication: Hypertension
  10. RISPERDAL [Concomitant]
     Active Substance: RISPERIDONE
     Dosage: IRREGULAR USE

REACTIONS (1)
  - Bradycardia [Not Recovered/Not Resolved]

NARRATIVE: CASE EVENT DATE: 20230503
